FAERS Safety Report 13636437 (Version 1)
Quarter: 2017Q2

REPORT INFORMATION
  Report Type: Spontaneous
  Country: US (occurrence: US)
  Receive Date: 20170609
  Receipt Date: 20170609
  Transmission Date: 20170830
  Serious: No
  Sender: FDA-Public Use
  Company Number: US-ELI_LILLY_AND_COMPANY-US201706002622

PATIENT
  Age: 70 Year
  Sex: Male

DRUGS (1)
  1. ALIMTA [Suspect]
     Active Substance: PEMETREXED DISODIUM
     Indication: NON-SMALL CELL LUNG CANCER
     Dosage: 500 MG/M2, UNKNOWN
     Route: 065
     Dates: start: 20160331

REACTIONS (5)
  - Fatigue [Unknown]
  - Rash [Unknown]
  - Cough [Unknown]
  - Dyspnoea [Unknown]
  - Hiccups [Unknown]

NARRATIVE: CASE EVENT DATE: 20160421
